FAERS Safety Report 8999346 (Version 1)
Quarter: 2013Q1

REPORT INFORMATION
  Report Type: Spontaneous
  Country: US (occurrence: US)
  Receive Date: 20130103
  Receipt Date: 20130103
  Transmission Date: 20140127
  Serious: Yes (Other)
  Sender: FDA-Public Use
  Company Number: US-PFIZER INC-2012334419

PATIENT
  Age: 78 Year
  Sex: Female
  Weight: 54.42 kg

DRUGS (12)
  1. PREMARIN [Suspect]
     Indication: HOT FLUSH
     Dosage: 0.625 MG, DAILY
     Route: 048
     Dates: end: 2010
  2. PREMARIN [Suspect]
     Indication: NERVOUSNESS
     Dosage: UNK
     Route: 048
     Dates: start: 201012
  3. SIMVASTATIN [Concomitant]
     Dosage: UNK
  4. MORPHINE [Concomitant]
     Dosage: UNK
  5. LOTOR [Concomitant]
     Dosage: UNK
  6. OMEPRAZOLE [Concomitant]
     Dosage: UNK
  7. ATENOLOL [Concomitant]
     Dosage: UNK
  8. AMBIEN [Concomitant]
     Indication: SLEEP DISORDER
     Dosage: UNK
  9. ASPIRIN [Concomitant]
     Dosage: UNK
  10. ZOFRAN [Concomitant]
     Dosage: UNK
  11. VITAMIN B6 [Concomitant]
     Dosage: UNK
  12. FISH OIL [Concomitant]
     Dosage: UNK

REACTIONS (3)
  - Lymphoma [Unknown]
  - Cardiac disorder [Unknown]
  - Neuropathy peripheral [Unknown]
